FAERS Safety Report 8480731-7 (Version None)
Quarter: 2012Q2

REPORT INFORMATION
  Report Type: 
  Country: None (occurrence: None)
  Receive Date: 20120626
  Receipt Date: 20120619
  Transmission Date: 20120825
  Serious: Yes (Hospitalization)
  Sender: FDA-Public Use
  Company Number: 2011SP050841

PATIENT
  Age: 35 Year
  Sex: Female
  Weight: 68.9467 kg

DRUGS (2)
  1. NUVARING [Suspect]
     Indication: CONTRACEPTION
     Dates: start: 20090629, end: 20091112
  2. WARFARIN SODIUM [Suspect]
     Indication: COAGULOPATHY

REACTIONS (23)
  - HYPONATRAEMIA [None]
  - VITAMIN B12 DEFICIENCY [None]
  - SINUSITIS BACTERIAL [None]
  - INFLUENZA [None]
  - HAEMORRHOIDAL HAEMORRHAGE [None]
  - HAEMATEMESIS [None]
  - ACNE [None]
  - FIBRIN D DIMER INCREASED [None]
  - PNEUMONIA BACTERIAL [None]
  - HAEMATOCHEZIA [None]
  - BRONCHITIS [None]
  - CHEST DISCOMFORT [None]
  - PULMONARY EMBOLISM [None]
  - COAGULOPATHY [None]
  - HYPERGLYCAEMIA [None]
  - AMENORRHOEA [None]
  - HEADACHE [None]
  - FEELING ABNORMAL [None]
  - CHEST X-RAY ABNORMAL [None]
  - ANAEMIA [None]
  - URTICARIA [None]
  - PALPITATIONS [None]
  - H1N1 INFLUENZA [None]
